FAERS Safety Report 15585069 (Version 2)
Quarter: 2019Q3

REPORT INFORMATION
  Report Type: Spontaneous
  Country: PY (occurrence: PY)
  Receive Date: 20181105
  Receipt Date: 20190927
  Transmission Date: 20191004
  Serious: Yes (Death)
  Sender: FDA-Public Use
  Company Number: PHHY2018PY146298

PATIENT
  Age: 52 Year
  Sex: Male

DRUGS (4)
  1. CYCLOSPORINE. [Concomitant]
     Active Substance: CYCLOSPORINE
     Indication: PRODUCT USED FOR UNKNOWN INDICATION
     Route: 065
  2. VITAMIN B COMPLEX [Concomitant]
     Active Substance: CYANOCOBALAMIN\DEXPANTHENOL\NIACINAMIDE\PYRIDOXINE HYDROCHLORIDE\RIBOFLAVIN 5^-PHOSPHATE SODIUM\THIAMINE HYDROCHLORIDE\VITAMIN B COMPLEX
     Indication: PRODUCT USED FOR UNKNOWN INDICATION
     Route: 065
  3. EXJADE [Suspect]
     Active Substance: DEFERASIROX
     Indication: IRON OVERLOAD
  4. EXJADE [Suspect]
     Active Substance: DEFERASIROX
     Indication: BONE MARROW FAILURE
     Dosage: 1 DF, QD
     Route: 048

REACTIONS (6)
  - Asthenia [Unknown]
  - Nausea [Unknown]
  - Death [Fatal]
  - Dysphagia [Unknown]
  - Vomiting [Unknown]
  - Abdominal distension [Unknown]
